FAERS Safety Report 18273999 (Version 1)
Quarter: 2020Q3

REPORT INFORMATION
  Report Type: Spontaneous
  Country: US (occurrence: US)
  Receive Date: 20200916
  Receipt Date: 20200916
  Transmission Date: 20201103
  Serious: No
  Sender: FDA-Public Use
  Company Number: US-TEVA-2020-US-1828489

PATIENT

DRUGS (1)
  1. DICLOFENAC [Suspect]
     Active Substance: DICLOFENAC
     Dosage: DICLOFENAC SODIUM:30 MG IN 1 G
     Route: 065

REACTIONS (1)
  - Application site rash [Unknown]
